FAERS Safety Report 19348763 (Version 1)
Quarter: 2021Q2

REPORT INFORMATION
  Report Type: Spontaneous
  Country: US (occurrence: US)
  Receive Date: 20210531
  Receipt Date: 20210531
  Transmission Date: 20210717
  Serious: Yes (Death)
  Sender: FDA-Public Use
  Company Number: US-PURDUE-USA-2020-0192039

PATIENT
  Age: 33 Year
  Sex: Male

DRUGS (32)
  1. BUTRANS [Suspect]
     Active Substance: BUPRENORPHINE
     Indication: DEPRESSION
  2. MS CONTIN [Suspect]
     Active Substance: MORPHINE SULFATE
     Indication: COMPLEX REGIONAL PAIN SYNDROME
     Dosage: UNKNOWN
     Route: 048
  3. MS CONTIN [Suspect]
     Active Substance: MORPHINE SULFATE
     Indication: DEPRESSION
  4. HYDROMORPHONE TABLETS [Suspect]
     Active Substance: HYDROMORPHONE
     Indication: COMPLEX REGIONAL PAIN SYNDROME
     Dosage: UNKNOWN
     Route: 048
  5. HYDROMORPHONE TABLETS [Suspect]
     Active Substance: HYDROMORPHONE
     Indication: DEPRESSION
  6. OXYIR [Suspect]
     Active Substance: OXYCODONE HYDROCHLORIDE
     Indication: COMPLEX REGIONAL PAIN SYNDROME
     Dosage: 5MG
     Route: 048
  7. RYZOLT [Suspect]
     Active Substance: TRAMADOL HYDROCHLORIDE
     Indication: DEPRESSION
  8. LYRICA [Suspect]
     Active Substance: PREGABALIN
     Indication: COMPLEX REGIONAL PAIN SYNDROME
     Dosage: 100MG
     Route: 048
  9. MEPROBAMATE. [Suspect]
     Active Substance: MEPROBAMATE
     Indication: COMPLEX REGIONAL PAIN SYNDROME
     Dosage: UNKNOWN
     Route: 048
  10. OXYCODONE HCL CR TABLETS (SIMILAR TO NDA 22?272) [Suspect]
     Active Substance: OXYCODONE HYDROCHLORIDE
     Indication: COMPLEX REGIONAL PAIN SYNDROME
     Dosage: 40MG/20MG/5MG
     Route: 048
  11. MORPHINE SULFATE EXTENDED?RELEASE TABLETS (RHODES 74?769, 74?862) [Suspect]
     Active Substance: MORPHINE SULFATE
     Indication: COMPLEX REGIONAL PAIN SYNDROME
     Dosage: UNKNOWN
     Route: 048
  12. OXYCODONE/ ACETAMINOPHEN TABLETS [Suspect]
     Active Substance: ACETAMINOPHEN\OXYCODONE HYDROCHLORIDE
     Indication: COMPLEX REGIONAL PAIN SYNDROME
     Dosage: 40MG/20MG/5MG
     Route: 048
  13. CARISOPRODOL. [Suspect]
     Active Substance: CARISOPRODOL
     Indication: COMPLEX REGIONAL PAIN SYNDROME
     Dosage: 350MG
     Route: 048
  14. DILAUDID [Suspect]
     Active Substance: HYDROMORPHONE HYDROCHLORIDE
     Indication: DEPRESSION
  15. MORPHINE SULFATE EXTENDED?RELEASE TABLETS (RHODES 74?769, 74?862) [Suspect]
     Active Substance: MORPHINE SULFATE
     Indication: DEPRESSION
  16. OXYCONTIN [Suspect]
     Active Substance: OXYCODONE HYDROCHLORIDE
     Indication: COMPLEX REGIONAL PAIN SYNDROME
     Dosage: 40MG
     Route: 048
  17. LYRICA [Suspect]
     Active Substance: PREGABALIN
     Indication: DEPRESSION
  18. GABAPENTIN. [Suspect]
     Active Substance: GABAPENTIN
     Indication: COMPLEX REGIONAL PAIN SYNDROME
     Dosage: 300MG
     Route: 048
  19. OXYCODONE HCL CR TABLETS (SIMILAR TO NDA 22?272) [Suspect]
     Active Substance: OXYCODONE HYDROCHLORIDE
     Indication: DEPRESSION
  20. BUTRANS [Suspect]
     Active Substance: BUPRENORPHINE
     Indication: COMPLEX REGIONAL PAIN SYNDROME
     Dosage: UNKNOWN
     Route: 062
  21. OXYCONTIN [Suspect]
     Active Substance: OXYCODONE HYDROCHLORIDE
     Indication: DEPRESSION
  22. BUPRENORPHINE TRANSDERMAL PATCH (SIMILAR TO NDA 21?306) [Suspect]
     Active Substance: BUPRENORPHINE
     Indication: DEPRESSION
  23. AMITRIPTYLINE [Suspect]
     Active Substance: AMITRIPTYLINE
     Indication: COMPLEX REGIONAL PAIN SYNDROME
     Dosage: 100MG
     Route: 048
  24. MEPROBAMATE. [Suspect]
     Active Substance: MEPROBAMATE
     Indication: DEPRESSION
  25. CARISOPRODOL. [Suspect]
     Active Substance: CARISOPRODOL
     Indication: DEPRESSION
  26. DILAUDID [Suspect]
     Active Substance: HYDROMORPHONE HYDROCHLORIDE
     Indication: COMPLEX REGIONAL PAIN SYNDROME
     Dosage: UNKNOWN
     Route: 048
  27. BUPRENORPHINE TRANSDERMAL PATCH (SIMILAR TO NDA 21?306) [Suspect]
     Active Substance: BUPRENORPHINE
     Indication: COMPLEX REGIONAL PAIN SYNDROME
     Dosage: UNKNOWN
     Route: 062
  28. OXYCODONE/ ACETAMINOPHEN TABLETS [Suspect]
     Active Substance: ACETAMINOPHEN\OXYCODONE HYDROCHLORIDE
     Indication: DEPRESSION
  29. RYZOLT [Suspect]
     Active Substance: TRAMADOL HYDROCHLORIDE
     Indication: COMPLEX REGIONAL PAIN SYNDROME
     Dosage: UNKNOWN
     Route: 048
  30. GABAPENTIN. [Suspect]
     Active Substance: GABAPENTIN
     Indication: DEPRESSION
  31. OXYIR [Suspect]
     Active Substance: OXYCODONE HYDROCHLORIDE
     Indication: DEPRESSION
  32. AMITRIPTYLINE [Suspect]
     Active Substance: AMITRIPTYLINE
     Indication: DEPRESSION

REACTIONS (1)
  - Overdose [Fatal]

NARRATIVE: CASE EVENT DATE: 20090409
